FAERS Safety Report 23227716 (Version 2)
Quarter: 2023Q4

REPORT INFORMATION
  Report Type: Spontaneous
  Country: ES (occurrence: ES)
  Receive Date: 20231125
  Receipt Date: 20231229
  Transmission Date: 20240110
  Serious: Yes (Other)
  Sender: FDA-Public Use
  Company Number: ES-CELLTRION INC.-2023ES022576

PATIENT

DRUGS (3)
  1. BEVACIZUMAB [Suspect]
     Active Substance: BEVACIZUMAB
     Indication: Neurofibromatosis
     Route: 065
  2. BRIGATINIB [Concomitant]
     Active Substance: BRIGATINIB
  3. PREDNISONE [Concomitant]
     Active Substance: PREDNISONE
     Dosage: 60 MG/DAY, WITH SUBSEQUENT DECREASE UNTIL DISCONTINUATION IN THE ABSENCE OF RESPONSE

REACTIONS (9)
  - Glomerulonephritis [Unknown]
  - Thrombotic microangiopathy [Unknown]
  - Nephropathy toxic [Unknown]
  - Cryoglobulinaemia [Unknown]
  - Nephrotic syndrome [Unknown]
  - Haematuria [Unknown]
  - Hypertension [Unknown]
  - Proteinuria [Unknown]
  - Intentional product use issue [Unknown]
